FAERS Safety Report 23502027 (Version 4)
Quarter: 2024Q2

REPORT INFORMATION
  Report Type: Spontaneous
  Country: JP (occurrence: JP)
  Receive Date: 20240208
  Receipt Date: 20240627
  Transmission Date: 20240716
  Serious: Yes (Hospitalization, Other)
  Sender: FDA-Public Use
  Company Number: JP-ELI_LILLY_AND_COMPANY-JP202402000790

PATIENT
  Age: 41 Year
  Sex: Female
  Weight: 59 kg

DRUGS (5)
  1. MOUNJARO [Suspect]
     Active Substance: TIRZEPATIDE
     Indication: Type 2 diabetes mellitus
     Dosage: 2.5 MG, UNKNOWN
     Route: 058
     Dates: start: 20231006, end: 20231102
  2. MOUNJARO [Suspect]
     Active Substance: TIRZEPATIDE
     Dosage: 5 MG, WEEKLY (1/W)
     Route: 058
     Dates: start: 20231103, end: 20231106
  3. GLUFAST OD [Concomitant]
     Indication: Type 2 diabetes mellitus
     Dosage: 10 MG, TID
     Route: 048
     Dates: end: 20231106
  4. BISOPROLOL [Concomitant]
     Active Substance: BISOPROLOL\BISOPROLOL FUMARATE
     Indication: Hypertension
     Dosage: 1 DOSAGE FORM, DAILY
     Route: 050
     Dates: start: 20231106, end: 20231106
  5. BISOPROLOL [Concomitant]
     Active Substance: BISOPROLOL\BISOPROLOL FUMARATE
     Indication: Sinus tachycardia

REACTIONS (10)
  - Ketosis [Recovered/Resolved]
  - Hyperglycaemia [Unknown]
  - Hypokalaemia [Unknown]
  - Graves^ disease [Not Recovered/Not Resolved]
  - Pyrexia [Unknown]
  - White blood cell count increased [Unknown]
  - Dehydration [Unknown]
  - Decreased appetite [Unknown]
  - Nausea [Recovered/Resolved]
  - Abdominal pain [Unknown]

NARRATIVE: CASE EVENT DATE: 20231103
